FAERS Safety Report 12309792 (Version 3)
Quarter: 2016Q3

REPORT INFORMATION
  Report Type: Spontaneous
  Country: IT (occurrence: IT)
  Receive Date: 20160427
  Receipt Date: 20160708
  Transmission Date: 20161109
  Serious: Yes (Hospitalization)
  Sender: FDA-Public Use
  Company Number: IT-TEVA-654480ACC

PATIENT
  Age: 76 Year
  Sex: Female

DRUGS (8)
  1. DEPAKIN - 200 MG COMPRESSE GASTRORESISTENTI - SANOFI S.P.A. [Suspect]
     Active Substance: VALPROATE SODIUM
     Indication: EPILEPSY
     Dosage: 400 MILLIGRAM DAILY;
     Route: 048
     Dates: end: 20160418
  2. LETROZOLO TEVA - 2,5 MG COMPRESSE RIVESTITE CON FILM - TEVA ITALIA S.R [Concomitant]
     Active Substance: LETROZOLE
     Indication: BREAST CANCER
     Dosage: 2.5 MG
     Route: 048
     Dates: end: 20160418
  3. CARDIOASPIRIN - 100 MG COMPRESSE GASTRORESISTENTI - BAYER S.P.A. [Concomitant]
     Active Substance: ASPIRIN
     Indication: PRODUCT USED FOR UNKNOWN INDICATION
     Dosage: 100 MG
     Route: 048
     Dates: end: 20160418
  4. QUETIAPINA TEVA - 100 MG COMPRESSE RIVESTITE CON FILM [Suspect]
     Active Substance: QUETIAPINE FUMARATE
     Indication: DEPRESSION
     Dosage: 400 MILLIGRAM DAILY;
     Route: 048
     Dates: end: 20160410
  5. DEPAKIN - 500 MG COMPRESSE GASTRORESISTENTI - SANOFI S.P.A. [Suspect]
     Active Substance: VALPROATE SODIUM
     Indication: EPILEPSY
     Dosage: 500 MILLIGRAM DAILY;
     Route: 048
     Dates: end: 20160418
  6. LANSOX - 15 MG CAPSULE RIGIDE - PROGRAMMI SANITARI INTEGRATI S.R.L [Concomitant]
     Indication: PRODUCT USED FOR UNKNOWN INDICATION
     Dosage: 15 MG
     Route: 048
     Dates: end: 20160418
  7. DELORAZEPAM ABC - 1 MG/ML GOCCE ORALI, SOLUZIONE [Interacting]
     Active Substance: DELORAZEPAM
     Indication: ANXIETY
     Dosage: 55 GTT DAILY;
     Route: 048
     Dates: end: 20160410
  8. PURSENNID - 12 MG COMPRESSE RIVESTITE - GLAXOSMITHKLINE CONSUMER HEALT [Concomitant]
     Indication: PRODUCT USED FOR UNKNOWN INDICATION
     Dosage: 24 MG
     Route: 048
     Dates: end: 20160418

REACTIONS (3)
  - Accidental overdose [Recovered/Resolved]
  - Sopor [Recovered/Resolved]
  - Drug interaction [Recovered/Resolved]

NARRATIVE: CASE EVENT DATE: 20160410
